FAERS Safety Report 8914775 (Version 2)
Quarter: 2013Q1

REPORT INFORMATION
  Report Type: Spontaneous
  Country: JP (occurrence: JP)
  Receive Date: 20121119
  Receipt Date: 20130304
  Transmission Date: 20140127
  Serious: Yes (Life-Threatening)
  Sender: FDA-Public Use
  Company Number: JP-ASTRAZENECA-2012SE86481

PATIENT
  Age: 422 Month
  Sex: Female

DRUGS (8)
  1. SYMBICORT TURBUHALER [Suspect]
     Indication: ASTHMA
     Dosage: 30 DOSES, 1 DOSAGE FORM TWO TIMES A DAY
     Route: 055
     Dates: start: 20120515
  2. ASVERIN (TIPEPIDINE HIBENZATE) [Concomitant]
     Route: 048
     Dates: start: 20120515
  3. SAWATENE [Concomitant]
     Route: 048
     Dates: start: 20120515
  4. EMPERACIN [Concomitant]
     Dosage: EVERY DAY
     Route: 065
     Dates: start: 20120515
  5. UNICON [Concomitant]
     Route: 065
     Dates: start: 20120515
  6. KIPRES [Concomitant]
     Route: 048
     Dates: start: 20120515
  7. PLACODE [Concomitant]
     Route: 065
     Dates: start: 20120515
  8. BAKUMONDOTO [Concomitant]
     Route: 048
     Dates: start: 20120515

REACTIONS (1)
  - Dyspnoea [Recovering/Resolving]
